FAERS Safety Report 7356197-7 (Version None)
Quarter: 2011Q1

REPORT INFORMATION
  Report Type: 
  Country: None (occurrence: None)
  Receive Date: 20110316
  Receipt Date: 20110308
  Transmission Date: 20110831
  Serious: Yes (Hospitalization, Other)
  Sender: FDA-Public Use
  Company Number: AR-PFIZER INC-2011040832

PATIENT
  Age: 57 Year
  Sex: Female
  Weight: 85 kg

DRUGS (4)
  1. RAPAMUNE [Suspect]
     Indication: RENAL TRANSPLANT
     Dosage: 3 MG, 1X/DAY
     Route: 048
     Dates: start: 20080101, end: 20101101
  2. DELTISON [Concomitant]
     Dosage: UNK
     Route: 048
  3. VITAMIN D [Concomitant]
     Dosage: UNK
     Route: 048
  4. LOSARTAN [Concomitant]
     Dosage: UNK
     Route: 048

REACTIONS (1)
  - ABDOMINAL HERNIA [None]
